FAERS Safety Report 9174717 (Version 1)
Quarter: 2013Q1

REPORT INFORMATION
  Report Type: Spontaneous
  Country: FR (occurrence: FR)
  Receive Date: 20130320
  Receipt Date: 20130320
  Transmission Date: 20140127
  Serious: Yes (Hospitalization, Other)
  Sender: FDA-Public Use
  Company Number: FR-ELI_LILLY_AND_COMPANY-FR201303002862

PATIENT
  Age: 41 Year
  Sex: Female

DRUGS (4)
  1. ZYPREXA [Suspect]
     Indication: PSYCHOTIC DISORDER
     Dosage: 15 MG, BID
     Route: 048
     Dates: start: 201211, end: 20121229
  2. CRESTOR [Concomitant]
  3. LYSANXIA [Concomitant]
  4. VENTOLINE                          /00139501/ [Concomitant]

REACTIONS (6)
  - Pancytopenia [Recovered/Resolved]
  - Weight decreased [Recovered/Resolved]
  - Amenorrhoea [Unknown]
  - Asthenia [Recovered/Resolved]
  - Dizziness [Recovered/Resolved]
  - Prescribed overdose [Unknown]
